FAERS Safety Report 14142881 (Version 1)
Quarter: 2017Q4

REPORT INFORMATION
  Report Type: Spontaneous
  Country: US (occurrence: None)
  Receive Date: 20171030
  Receipt Date: 20171030
  Transmission Date: 20180321
  Serious: No
  Sender: FDA-Public Use
  Company Number: None

PATIENT
  Age: 60 Year
  Sex: Male
  Weight: 63.5 kg

DRUGS (2)
  1. PREDNISONE. [Concomitant]
     Active Substance: PREDNISONE
  2. DUPIXENT [Suspect]
     Active Substance: DUPILUMAB
     Indication: ECZEMA
     Dates: start: 20170925, end: 20170925

REACTIONS (4)
  - Oropharyngeal pain [None]
  - Hot flush [None]
  - Rash generalised [None]
  - Insomnia [None]

NARRATIVE: CASE EVENT DATE: 20170925
